FAERS Safety Report 10235146 (Version 1)
Quarter: 2014Q2

REPORT INFORMATION
  Report Type: Spontaneous
  Country: US (occurrence: None)
  Receive Date: 20140611
  Receipt Date: 20140611
  Transmission Date: 20141212
  Serious: Yes (Other)
  Sender: FDA-Public Use
  Company Number: IMP_07613_2014

PATIENT
  Age: 60 Year
  Sex: Female
  Weight: 109.32 kg

DRUGS (2)
  1. OXYMORPHONE [Suspect]
     Indication: PAIN
     Dates: start: 20140410
  2. OXYCODONE [Concomitant]

REACTIONS (9)
  - Joint swelling [None]
  - Peripheral swelling [None]
  - Abasia [None]
  - Weight increased [None]
  - Drug ineffective [None]
  - Product quality issue [None]
  - Cardiac failure congestive [None]
  - Cellulitis [None]
  - Clostridium difficile infection [None]
